FAERS Safety Report 10618846 (Version 1)
Quarter: 2014Q4

REPORT INFORMATION
  Report Type: Spontaneous
  Country: US (occurrence: US)
  Receive Date: 20141202
  Receipt Date: 20141202
  Transmission Date: 20150529
  Serious: No
  Sender: FDA-Public Use
  Company Number: US-ELI_LILLY_AND_COMPANY-US201411000933

PATIENT
  Sex: Female

DRUGS (4)
  1. DULOXETINE HYDROCHLORIDE. [Suspect]
     Active Substance: DULOXETINE HYDROCHLORIDE
     Dosage: 20 MG, QOD
     Route: 065
  2. DULOXETINE HYDROCHLORIDE. [Suspect]
     Active Substance: DULOXETINE HYDROCHLORIDE
     Dosage: 20 MG, QD
     Route: 065
  3. DULOXETINE HYDROCHLORIDE. [Suspect]
     Active Substance: DULOXETINE HYDROCHLORIDE
     Indication: FIBROMYALGIA
     Dosage: 90 MG, UNKNOWN
     Route: 065
     Dates: end: 201410
  4. DULOXETINE HYDROCHLORIDE. [Suspect]
     Active Substance: DULOXETINE HYDROCHLORIDE
     Dosage: 20 MG, UNK
     Route: 065

REACTIONS (7)
  - Drug withdrawal syndrome [Unknown]
  - Epigastric discomfort [Unknown]
  - Headache [Unknown]
  - Nausea [Unknown]
  - Paraesthesia [Unknown]
  - Dizziness [Unknown]
  - Hyperhidrosis [Unknown]
